FAERS Safety Report 5514420-5 (Version None)
Quarter: 2007Q4

REPORT INFORMATION
  Report Type: 
  Country: None (occurrence: None)
  Receive Date: 20071113
  Receipt Date: 20070524
  Transmission Date: 20080405
  Serious: No
  Sender: FDA-Public Use
  Company Number: A0651555A

PATIENT
  Age: 71 Year
  Sex: Male

DRUGS (7)
  1. COREG [Suspect]
     Dosage: 25MG TWICE PER DAY
     Route: 048
  2. DIOVAN [Concomitant]
  3. PRAVACHOL [Concomitant]
  4. NIASPAN [Concomitant]
  5. INSULIN [Concomitant]
  6. ASPIRIN [Concomitant]
  7. CENTRUM [Concomitant]

REACTIONS (15)
  - BACK PAIN [None]
  - BLOOD GLUCOSE INCREASED [None]
  - BLOOD PRESSURE INCREASED [None]
  - DIZZINESS [None]
  - DRUG INEFFECTIVE [None]
  - DYSPNOEA [None]
  - FATIGUE [None]
  - FEELING JITTERY [None]
  - HEADACHE [None]
  - ILL-DEFINED DISORDER [None]
  - NERVOUSNESS [None]
  - STRESS [None]
  - TENSION [None]
  - UPPER RESPIRATORY TRACT CONGESTION [None]
  - VENTRICULAR EXTRASYSTOLES [None]
